FAERS Safety Report 15023543 (Version 1)
Quarter: 2018Q2

REPORT INFORMATION
  Report Type: Spontaneous
  Country: US (occurrence: US)
  Receive Date: 20180618
  Receipt Date: 20180618
  Transmission Date: 20180711
  Serious: Yes (Hospitalization)
  Sender: FDA-Public Use
  Company Number: US-PFIZER INC-2018208775

PATIENT
  Age: 60 Year
  Sex: Female

DRUGS (3)
  1. PREPARATION H COOLING GEL [Suspect]
     Active Substance: PHENYLEPHRINE HYDROCHLORIDE\WITCH HAZEL
     Indication: HAEMORRHOIDS
     Dosage: UNK, SINGLE
     Dates: start: 201804, end: 201804
  2. PREPARATION H MEDICATED WIPES [Concomitant]
     Active Substance: WITCH HAZEL
     Dosage: UNK
  3. PREPARATION H MAXIMUM STRENGTH PAIN RELIEF [Concomitant]
     Dosage: UNK

REACTIONS (3)
  - Drug ineffective [Unknown]
  - Rash [Recovered/Resolved]
  - Discomfort [Recovered/Resolved]

NARRATIVE: CASE EVENT DATE: 201804
